FAERS Safety Report 9602468 (Version 8)
Quarter: 2015Q4

REPORT INFORMATION
  Report Type: Spontaneous
  Country: US (occurrence: US)
  Receive Date: 20131007
  Receipt Date: 20151008
  Transmission Date: 20160305
  Serious: Yes (Death, Hospitalization, Disabling, Other)
  Sender: FDA-Public Use
  Company Number: US-009507513-1310USA002840

PATIENT
  Sex: Male
  Weight: 74.38 kg

DRUGS (2)
  1. JANUVIA [Suspect]
     Active Substance: SITAGLIPTIN PHOSPHATE
     Indication: TYPE 2 DIABETES MELLITUS
     Dosage: 100 MG, QD
     Route: 048
     Dates: start: 20070509, end: 20100507
  2. GLIPIZIDE (+) METFORMIN HYDROCHLORIDE [Concomitant]
     Indication: TYPE 2 DIABETES MELLITUS
     Dosage: 5-500 MG, BID
     Route: 048
     Dates: start: 20011023, end: 20120412

REACTIONS (26)
  - Bone disorder [Unknown]
  - Blood glucose increased [Unknown]
  - Insulin-requiring type 2 diabetes mellitus [Unknown]
  - Chronic sinusitis [Not Recovered/Not Resolved]
  - Neuropathy peripheral [Unknown]
  - Osteoarthritis [Unknown]
  - Hypertension [Unknown]
  - Blood disorder [Unknown]
  - Inappropriate schedule of drug administration [Unknown]
  - Inadequate diet [Unknown]
  - Diabetes mellitus inadequate control [Unknown]
  - Pancreatic carcinoma metastatic [Not Recovered/Not Resolved]
  - Intestinal mass [Unknown]
  - Increased insulin requirement [Unknown]
  - Pulmonary embolism [Unknown]
  - Depression [Unknown]
  - Stress [Unknown]
  - Bile duct stent insertion [Unknown]
  - Sleep disorder [Unknown]
  - Device occlusion [Recovering/Resolving]
  - Metastases to liver [Not Recovered/Not Resolved]
  - Death [Fatal]
  - Jaundice cholestatic [Unknown]
  - Hypercholesterolaemia [Unknown]
  - Sexual dysfunction [Unknown]
  - Blood triglycerides increased [Unknown]

NARRATIVE: CASE EVENT DATE: 20070509
